FAERS Safety Report 21491843 (Version 8)
Quarter: 2023Q1

REPORT INFORMATION
  Report Type: Spontaneous
  Country: JP (occurrence: JP)
  Receive Date: 20221021
  Receipt Date: 20230322
  Transmission Date: 20230418
  Serious: Yes (Other)
  Sender: FDA-Public Use
  Company Number: JP-ASTELLAS-2022JP013610

PATIENT
  Age: 7 Decade
  Sex: Male

DRUGS (3)
  1. PADCEV [Suspect]
     Active Substance: ENFORTUMAB VEDOTIN-EJFV
     Indication: Transitional cell carcinoma
     Route: 041
     Dates: start: 20220825, end: 20221006
  2. PADCEV [Suspect]
     Active Substance: ENFORTUMAB VEDOTIN-EJFV
     Dosage: UNK UNK, UNKNOWN FREQ.
     Route: 041
     Dates: start: 20221027
  3. PADCEV [Suspect]
     Active Substance: ENFORTUMAB VEDOTIN-EJFV
     Route: 041
     Dates: start: 20221229, end: 20230224

REACTIONS (6)
  - Malaise [Recovering/Resolving]
  - Rash [Recovering/Resolving]
  - Neutrophil count decreased [Not Recovered/Not Resolved]
  - Thrombosis [Recovering/Resolving]
  - Hypoaesthesia [Not Recovered/Not Resolved]
  - Taste disorder [Not Recovered/Not Resolved]

NARRATIVE: CASE EVENT DATE: 20220901
